FAERS Safety Report 16653294 (Version 2)
Quarter: 2019Q3

REPORT INFORMATION
  Report Type: Report from Study
  Country: US (occurrence: US)
  Receive Date: 20190731
  Receipt Date: 20190925
  Transmission Date: 20191004
  Serious: Yes (Other)
  Sender: FDA-Public Use
  Company Number: US-ELI_LILLY_AND_COMPANY-US201907015866

PATIENT
  Age: 51 Year
  Sex: Male
  Weight: 77.1 kg

DRUGS (2)
  1. OLANZAPINE. [Concomitant]
     Active Substance: OLANZAPINE
     Indication: PRODUCT USED FOR UNKNOWN INDICATION
     Dosage: 20 MG, UNKNOWN
     Route: 048
  2. OLANZAPINE PAMOATE [Suspect]
     Active Substance: OLANZAPINE PAMOATE
     Indication: SCHIZOAFFECTIVE DISORDER
     Dosage: 300 MG, EVERY 2 WEEKS
     Route: 030
     Dates: start: 20190611

REACTIONS (6)
  - Confusional state [Recovered/Resolved]
  - Anxiety [Recovered/Resolved]
  - Disorientation [Recovered/Resolved]
  - Post-injection delirium sedation syndrome [Recovered/Resolved]
  - Sedation [Recovered/Resolved]
  - Feeling abnormal [Recovered/Resolved]

NARRATIVE: CASE EVENT DATE: 20190723
